FAERS Safety Report 24784464 (Version 1)
Quarter: 2024Q4

REPORT INFORMATION
  Report Type: Spontaneous
  Country: AU (occurrence: AU)
  Receive Date: 20241227
  Receipt Date: 20241227
  Transmission Date: 20250115
  Serious: Yes (Hospitalization, Other)
  Sender: MYLAN
  Company Number: AU-MYLANLABS-2024M1115160

PATIENT
  Age: 53 Year
  Sex: Male
  Weight: 96 kg

DRUGS (18)
  1. CLOZARIL [Suspect]
     Active Substance: CLOZAPINE
     Indication: Schizophrenia
     Dosage: 500 MILLIGRAM, PM (NOCTE)
     Route: 048
     Dates: start: 20030501
  2. ARIPIPRAZOLE [Concomitant]
     Active Substance: ARIPIPRAZOLE
     Indication: Adjuvant therapy
     Dosage: 400 MILLIGRAM, MONTHLY
     Route: 030
  3. VALPROATE [Concomitant]
     Active Substance: VALPROIC ACID
     Dosage: 900 MILLIGRAM, BID (TWICE A DAY)
     Route: 065
  4. MEMANTINE [Concomitant]
     Active Substance: MEMANTINE
     Indication: Cognitive disorder
     Dosage: 10 MILLIGRAM, BID (TWICE A DAY)
     Route: 065
  5. RYZODEG 70/30 [Concomitant]
     Active Substance: INSULIN ASPART\INSULIN DEGLUDEC
     Dosage: UNK, BID (INJECTION DEVICE 70/30; 54 U)
     Route: 065
  6. SEMAGLUTIDE [Concomitant]
     Active Substance: SEMAGLUTIDE
     Dosage: 1 MILLIGRAM, QW (WEEKLY, STOPPED HAVING THIS RECENTLY)
     Route: 058
  7. JARDIANCE [Concomitant]
     Active Substance: EMPAGLIFLOZIN
     Dosage: 25 MILLIGRAM, AM (IN MORNING)
     Route: 065
  8. FISH OIL [Concomitant]
     Active Substance: FISH OIL
     Dosage: 3 DOSAGE FORM, QD ( 3 CAPSULES DAILY)
     Route: 065
  9. FENOFIBRATE [Concomitant]
     Active Substance: FENOFIBRATE
     Dosage: 145 MILLIGRAM, AM (MANE)
     Route: 065
  10. EZETIMIBE [Concomitant]
     Active Substance: EZETIMIBE
     Dosage: 10 MILLIGRAM, AM (MANE)
     Route: 065
  11. LEVOTHYROXINE [Concomitant]
     Active Substance: LEVOTHYROXINE
     Dosage: 50 MICROGRAM, AM (MANE)
     Route: 065
  12. METFORMIN [Concomitant]
     Active Substance: METFORMIN HYDROCHLORIDE
     Dosage: 2000 MILLIGRAM, PM (MODIFIED RELEASE, NOCTE)
     Route: 065
  13. ROSUVASTATIN [Concomitant]
     Active Substance: ROSUVASTATIN
     Indication: Blood cholesterol abnormal
     Dosage: 20 MILLIGRAM, PM (NOCTE)
     Route: 065
  14. RAMIPRIL [Concomitant]
     Active Substance: RAMIPRIL
     Indication: Hypertension
     Dosage: 5 MILLIGRAM, AM (MANE)
     Route: 065
  15. SCOPOLAMINE [Concomitant]
     Active Substance: SCOPOLAMINE
     Indication: Salivary hypersecretion
     Dosage: 300 MILLIGRAM, PM (NOCTE CHEW 1 TABLET)
     Route: 065
  16. PANTOPRAZOLE [Concomitant]
     Active Substance: PANTOPRAZOLE
     Indication: Gastrooesophageal reflux disease
     Dosage: 40 MILLIGRAM, AM (MANE)
     Route: 065
  17. ALBUTEROL [Concomitant]
     Active Substance: ALBUTEROL
     Indication: Chronic obstructive pulmonary disease
     Dosage: 2 DOSAGE FORM, PRN (2 PUFFS AS REQUIRED VIA METERED DOSE INHALER)
     Route: 055
  18. OZEMPIC [Concomitant]
     Active Substance: SEMAGLUTIDE
     Indication: Glycosylated haemoglobin abnormal
     Dosage: UNK
     Route: 065

REACTIONS (4)
  - Non-cardiac chest pain [Unknown]
  - Tricuspid valve incompetence [Not Recovered/Not Resolved]
  - Mitral valve incompetence [Not Recovered/Not Resolved]
  - Systolic dysfunction [Unknown]

NARRATIVE: CASE EVENT DATE: 20240519
